FAERS Safety Report 5238901-7 (Version None)
Quarter: 2007Q1

REPORT INFORMATION
  Report Type: 
  Country: None (occurrence: None)
  Receive Date: 20070209
  Receipt Date: 20070126
  Transmission Date: 20070707
  Serious: Yes (Other)
  Sender: FDA-Public Use
  Company Number: 2007BI002100

PATIENT
  Age: 23 Year
  Sex: Female

DRUGS (6)
  1. AVONEX [Suspect]
     Indication: MULTIPLE SCLEROSIS
     Dosage: 7.5 UG; QW; IM
     Route: 030
     Dates: start: 20060718, end: 20060801
  2. AVONEX [Suspect]
     Indication: MULTIPLE SCLEROSIS
     Dosage: 15 UG; QW; IM
     Route: 030
     Dates: start: 20060801, end: 20060901
  3. AVONEX [Suspect]
     Indication: MULTIPLE SCLEROSIS
     Dosage: 30 UG; QW; IM
     Route: 030
     Dates: start: 20060901
  4. DEPAKOTE ER [Concomitant]
  5. ORAL CONTRACEPTIVE NOS [Concomitant]
  6. KEPPRA [Concomitant]

REACTIONS (9)
  - COORDINATION ABNORMAL [None]
  - DRUG EXPOSURE DURING PREGNANCY [None]
  - ECTOPIC PREGNANCY [None]
  - EYE MOVEMENT DISORDER [None]
  - HEMIPARESIS [None]
  - MULTIPLE SCLEROSIS [None]
  - NYSTAGMUS [None]
  - REFUSAL OF TREATMENT BY RELATIVE [None]
  - SOMNOLENCE [None]
